FAERS Safety Report 7939001-5 (Version None)
Quarter: 2011Q4

REPORT INFORMATION
  Report Type: 
  Country: None (occurrence: None)
  Receive Date: 20111124
  Receipt Date: 20110420
  Transmission Date: 20120403
  Serious: Yes (Hospitalization)
  Sender: FDA-Public Use
  Company Number: US-BAYER-2011-032055

PATIENT
  Age: 82 Year
  Sex: Male

DRUGS (14)
  1. PROZAC [Concomitant]
  2. LISINOPRIL [Concomitant]
  3. SIMVASTATIN [Concomitant]
  4. COREG [Concomitant]
  5. DECITABINE [Concomitant]
     Indication: MYELODYSPLASTIC SYNDROME
     Dosage: UNK
     Dates: start: 20100301
  6. METOLAZONE [Concomitant]
  7. NITROGLYCERIN [Concomitant]
  8. LIDOCAINE [Concomitant]
  9. WARFARIN SODIUM [Suspect]
     Indication: THROMBOSIS PROPHYLAXIS
     Dosage: UNK
     Route: 048
     Dates: start: 20100108, end: 20100118
  10. ASPIRIN [Suspect]
     Dosage: 81 MG, QD
  11. APIXABAN [Suspect]
     Indication: THROMBOSIS PROPHYLAXIS
     Dosage: 10 MG, QD
     Route: 048
     Dates: start: 20100108, end: 20100119
  12. COUMADIN [Suspect]
     Dosage: UNK
     Dates: start: 20100924, end: 20110103
  13. COLCHICINE [Concomitant]
  14. LASIX [Concomitant]

REACTIONS (5)
  - PANCYTOPENIA [None]
  - FATIGUE [None]
  - RECTAL HAEMORRHAGE [None]
  - GASTROINTESTINAL HAEMORRHAGE [None]
  - HAEMATOCHEZIA [None]
